FAERS Safety Report 19270097 (Version 1)
Quarter: 2021Q2

REPORT INFORMATION
  Report Type: Spontaneous
  Country: US (occurrence: US)
  Receive Date: 20210518
  Receipt Date: 20210518
  Transmission Date: 20210717
  Serious: No
  Sender: FDA-Public Use
  Company Number: None

PATIENT
  Age: 64 Year
  Sex: Female
  Weight: 82.8 kg

DRUGS (7)
  1. VITAMIN B?6 [Concomitant]
     Active Substance: PYRIDOXINE
  2. BLACK CHERRY EXTRACT [Concomitant]
  3. ADDERALL ER 20 [Concomitant]
  4. VITAMIN B12 [Concomitant]
     Active Substance: CYANOCOBALAMIN
  5. VITAMIN D3 [Concomitant]
     Active Substance: CHOLECALCIFEROL
  6. DEXTROAMPHET SACCHARAT, AMPHET ASPARTATE, DEXTROAMPHET SULFATE AND AMPHET SULFAT [Suspect]
     Active Substance: AMPHETAMINE ASPARTATE\AMPHETAMINE SULFATE\DEXTROAMPHETAMINE SACCHARATE\DEXTROAMPHETAMINE SULFATE
     Indication: ATTENTION DEFICIT HYPERACTIVITY DISORDER
     Dosage: ?          QUANTITY:2 CAPSULE(S);?
     Route: 048
     Dates: start: 20210115
  7. DAILY VITAMIN [Concomitant]
     Active Substance: VITAMINS

REACTIONS (4)
  - Nervousness [None]
  - Disturbance in attention [None]
  - Product quality issue [None]
  - Panic reaction [None]

NARRATIVE: CASE EVENT DATE: 20210115
